FAERS Safety Report 8941141 (Version 2)
Quarter: 2012Q4

REPORT INFORMATION
  Report Type: 
  Country: ES (occurrence: ES)
  Receive Date: 20121203
  Receipt Date: 20121216
  Transmission Date: 20130627
  Serious: Yes (Other)
  Sender: FDA-Public Use
  Company Number: ES-TEVA-372622ISR

PATIENT
  Age: 64 Year
  Sex: Female

DRUGS (2)
  1. ALENDRONIC ACID [Suspect]
     Indication: OSTEOPOROSIS
     Route: 048
  2. CALCIUM [Concomitant]
     Route: 065

REACTIONS (5)
  - Osteonecrosis of jaw [Unknown]
  - Exposed bone in jaw [Unknown]
  - Pain in jaw [Unknown]
  - Purulence [Unknown]
  - Sinusitis [Unknown]
